FAERS Safety Report 8801234 (Version 2)
Quarter: 2012Q4

REPORT INFORMATION
  Report Type: 
  Country: US (occurrence: US)
  Receive Date: 20120920
  Receipt Date: 20121003
  Transmission Date: 20130627
  Serious: No
  Sender: FDA-Public Use
  Company Number: US-ASTRAZENECA-2011SE78969

PATIENT
  Age: 43 Year
  Sex: Male

DRUGS (28)
  1. NEXIUM [Suspect]
     Indication: GASTROOESOPHAGEAL REFLUX DISEASE
     Route: 048
  2. NEXIUM [Suspect]
     Indication: GASTROOESOPHAGEAL REFLUX DISEASE
     Route: 048
     Dates: start: 20120529
  3. LISINOPRIL [Suspect]
     Route: 048
  4. TOPROL XL [Suspect]
     Indication: HEART RATE ABNORMAL
     Route: 048
     Dates: start: 2011
  5. TOPROL XL [Suspect]
     Indication: BLOOD PRESSURE ABNORMAL
     Route: 048
     Dates: start: 2011
  6. SEROQUEL [Suspect]
     Indication: SLEEP DISORDER
     Route: 048
  7. SEROQUEL [Suspect]
     Indication: SLEEP DISORDER
     Route: 048
  8. SEROQUEL [Suspect]
     Indication: SLEEP DISORDER
     Route: 048
  9. SEROQUEL [Suspect]
     Indication: SLEEP DISORDER
     Route: 048
  10. SEROQUEL [Suspect]
     Indication: SLEEP DISORDER
     Route: 048
     Dates: start: 201207, end: 201209
  11. SEROQUEL [Suspect]
     Indication: SLEEP DISORDER
     Route: 048
     Dates: start: 201207, end: 201209
  12. ATIVAN [Concomitant]
  13. CLONIDINE HCL [Concomitant]
     Indication: HYPERTENSION
     Route: 048
     Dates: start: 201108
  14. AMARYL [Concomitant]
     Indication: DIABETES MELLITUS
     Route: 048
     Dates: start: 1998
  15. LANTUS [Concomitant]
     Dosage: 100 UNIT/ML
  16. SIMVASTATIN [Concomitant]
  17. AMBIEN [Concomitant]
  18. METFORMIN HCL [Concomitant]
     Indication: DIABETES MELLITUS
     Route: 048
     Dates: start: 1998
  19. ALLEGRA [Concomitant]
  20. LORAZEPAM [Concomitant]
  21. GOODYS EXTRA STRENTH [Concomitant]
     Dosage: 500-325-65 MG PACKET
  22. LOTENSIN [Concomitant]
  23. ELAVIL [Concomitant]
  24. TRAZODONE [Concomitant]
     Indication: INSOMNIA
     Route: 048
     Dates: start: 201209
  25. PROZAC [Concomitant]
     Indication: DEPRESSION
     Route: 048
     Dates: start: 20120907
  26. LEVEMIR [Concomitant]
     Indication: DIABETES MELLITUS
     Route: 048
     Dates: start: 2011
  27. ZYRTEC [Concomitant]
     Indication: MULTIPLE ALLERGIES
     Route: 048
     Dates: start: 2012
  28. NASONEX [Concomitant]
     Indication: MULTIPLE ALLERGIES
     Dosage: 1 PUFF EACH NOSTRIL, BID
     Route: 045
     Dates: start: 201205

REACTIONS (10)
  - Hypertension [Unknown]
  - Weight increased [Unknown]
  - Cough [Unknown]
  - Headache [Unknown]
  - Dry mouth [Unknown]
  - Drug hypersensitivity [Unknown]
  - Off label use [Recovered/Resolved]
  - Off label use [Recovered/Resolved]
  - Drug ineffective [Unknown]
  - Drug dose omission [Unknown]
